FAERS Safety Report 17976401 (Version 16)
Quarter: 2021Q1

REPORT INFORMATION
  Report Type: Other
  Country: GB (occurrence: GB)
  Receive Date: 20200703
  Receipt Date: 20210325
  Transmission Date: 20210419
  Serious: Yes (Other)
  Sender: FDA-Public Use
  Company Number: GB-ROCHE-2606410

PATIENT
  Age: 54 Year
  Sex: Female
  Weight: 63.5 kg

DRUGS (32)
  1. ATEZOLIZUMAB. [Suspect]
     Active Substance: ATEZOLIZUMAB
     Route: 041
     Dates: start: 20200826
  2. PROLIA [Suspect]
     Active Substance: DENOSUMAB
     Indication: BONE PAIN
     Route: 065
     Dates: start: 20200803
  3. PACLITAXEL. [Suspect]
     Active Substance: PACLITAXEL
     Indication: NEOPLASM MALIGNANT
     Route: 065
  4. CHLORPHENAMINE [Concomitant]
     Active Substance: CHLORPHENIRAMINE MALEATE
     Dosage: 10 MILLIGRAM
     Dates: start: 20200304, end: 20200304
  5. MORPHINE [Concomitant]
     Active Substance: MORPHINE
     Indication: PAIN IN EXTREMITY
     Dates: start: 20200829
  6. ATEZOLIZUMAB. [Suspect]
     Active Substance: ATEZOLIZUMAB
     Indication: NEOPLASM MALIGNANT
     Dosage: DOSE OF LAST ATEZOLIZUMAB ADMINISTERED PRIOR TO SAE ONSET 15/APR/2020? 1200 MG
     Route: 041
     Dates: start: 20200204
  7. ATEZOLIZUMAB. [Suspect]
     Active Substance: ATEZOLIZUMAB
     Route: 041
     Dates: start: 20200212
  8. ATEZOLIZUMAB. [Suspect]
     Active Substance: ATEZOLIZUMAB
     Route: 041
     Dates: start: 20200325
  9. BEVACIZUMAB. [Suspect]
     Active Substance: BEVACIZUMAB
     Indication: NEOPLASM MALIGNANT
     Route: 041
  10. ATEZOLIZUMAB. [Suspect]
     Active Substance: ATEZOLIZUMAB
     Route: 041
     Dates: start: 20200415
  11. CYCLIZINE [Concomitant]
     Active Substance: CYCLIZINE
     Dates: start: 20200811
  12. LOPERAMIDE [Concomitant]
     Active Substance: LOPERAMIDE
     Indication: DIARRHOEA
     Dates: start: 20200601
  13. DEXAMETHASONE. [Concomitant]
     Active Substance: DEXAMETHASONE
     Dates: start: 20200325, end: 20200325
  14. ATEZOLIZUMAB. [Suspect]
     Active Substance: ATEZOLIZUMAB
     Route: 041
     Dates: start: 20200304
  15. ETOPOSIDE. [Suspect]
     Active Substance: ETOPOSIDE
     Indication: NEOPLASM MALIGNANT
     Route: 065
  16. CHLORPHENAMINE [Concomitant]
     Active Substance: CHLORPHENIRAMINE MALEATE
     Dosage: 10 MILLIGRAM
     Dates: start: 20200325, end: 20200325
  17. ONDANSETRON [Concomitant]
     Active Substance: ONDANSETRON
     Dosage: 8 MILLIGRAM
     Dates: start: 20200212, end: 20200212
  18. PREDNISOLONE. [Concomitant]
     Active Substance: PREDNISOLONE
     Dates: start: 20200921, end: 20200925
  19. PREDNISOLONE. [Concomitant]
     Active Substance: PREDNISOLONE
     Dates: start: 20200926, end: 20201005
  20. ATEZOLIZUMAB. [Suspect]
     Active Substance: ATEZOLIZUMAB
     Route: 041
     Dates: start: 20200603
  21. ATEZOLIZUMAB. [Suspect]
     Active Substance: ATEZOLIZUMAB
     Route: 041
     Dates: start: 20200513
  22. ATEZOLIZUMAB. [Suspect]
     Active Substance: ATEZOLIZUMAB
     Route: 041
     Dates: start: 20200805
  23. FAMOTIDINE. [Concomitant]
     Active Substance: FAMOTIDINE
     Dosage: 40 MILLIGRAM
     Dates: start: 20200212, end: 20200212
  24. DENOSUMAB [Concomitant]
     Active Substance: DENOSUMAB
     Indication: BONE PAIN
     Dates: start: 20200803
  25. ATEZOLIZUMAB. [Suspect]
     Active Substance: ATEZOLIZUMAB
     Route: 041
     Dates: start: 20200715
  26. CARBOPLATIN. [Suspect]
     Active Substance: CARBOPLATIN
     Indication: NEOPLASM MALIGNANT
     Route: 065
  27. ATEZOLIZUMAB. [Suspect]
     Active Substance: ATEZOLIZUMAB
     Route: 041
     Dates: start: 20200624
  28. ATEZOLIZUMAB. [Suspect]
     Active Substance: ATEZOLIZUMAB
     Route: 041
     Dates: start: 20200916
  29. FILGRASTIM [Suspect]
     Active Substance: FILGRASTIM
     Indication: WHITE BLOOD CELL COUNT DECREASED
     Route: 065
     Dates: start: 20200512, end: 20200515
  30. RANITIDINE. [Concomitant]
     Active Substance: RANITIDINE
     Dosage: 50 MILLIGRAM
     Dates: start: 20200304, end: 20200304
  31. RANITIDINE. [Concomitant]
     Active Substance: RANITIDINE
     Dosage: 50 MILLIGRAM
     Dates: start: 20200325, end: 20200325
  32. DEXAMETHASONE. [Concomitant]
     Active Substance: DEXAMETHASONE
     Dates: start: 20200304, end: 20200304

REACTIONS (14)
  - White blood cell count decreased [Recovered/Resolved]
  - Weight decreased [Recovered/Resolved]
  - Haemoglobin decreased [Not Recovered/Not Resolved]
  - Vomiting [Recovering/Resolving]
  - Diarrhoea [Unknown]
  - White blood cell count decreased [Recovered/Resolved]
  - Nausea [Not Recovered/Not Resolved]
  - Decreased appetite [Not Recovered/Not Resolved]
  - Intentional product use issue [Unknown]
  - Blood magnesium decreased [Recovering/Resolving]
  - Anaemia [Not Recovered/Not Resolved]
  - Platelet count decreased [Unknown]
  - Off label use [Unknown]
  - Haemoglobin decreased [Recovered/Resolved]

NARRATIVE: CASE EVENT DATE: 20200427
